FAERS Safety Report 20981439 (Version 1)
Quarter: 2022Q2

REPORT INFORMATION
  Report Type: Spontaneous
  Country: JP (occurrence: JP)
  Receive Date: 20220620
  Receipt Date: 20220620
  Transmission Date: 20220721
  Serious: Yes (Death, Other)
  Sender: FDA-Public Use
  Company Number: JP-BRISTOL-MYERS SQUIBB COMPANY-2022-060564

PATIENT
  Age: 57 Year
  Sex: Male
  Weight: 77.8 kg

DRUGS (21)
  1. YERVOY [Suspect]
     Active Substance: IPILIMUMAB
     Indication: Malignant melanoma
     Dosage: 3 MG/KG
     Route: 041
     Dates: start: 20200603, end: 20200603
  2. YERVOY [Suspect]
     Active Substance: IPILIMUMAB
     Route: 041
     Dates: start: 2020
  3. YERVOY [Suspect]
     Active Substance: IPILIMUMAB
  4. OPDIVO [Suspect]
     Active Substance: NIVOLUMAB
     Indication: Malignant melanoma
     Dosage: 80 MILLIGRAM
     Route: 041
     Dates: start: 20200603, end: 20200603
  5. OPDIVO [Suspect]
     Active Substance: NIVOLUMAB
     Route: 041
     Dates: start: 2020
  6. BRAFTOVI [Suspect]
     Active Substance: ENCORAFENIB
     Indication: Malignant melanoma
     Dosage: 300 MILLIGRAM, QD
     Route: 048
     Dates: start: 20200327, end: 20200409
  7. BRAFTOVI [Suspect]
     Active Substance: ENCORAFENIB
     Dosage: 450 MILLIGRAM
     Route: 048
     Dates: start: 20190410, end: 20190411
  8. BRAFTOVI [Suspect]
     Active Substance: ENCORAFENIB
     Dosage: 300 MILLIGRAM, QD
     Route: 048
     Dates: start: 20190417, end: 20190517
  9. BRAFTOVI [Suspect]
     Active Substance: ENCORAFENIB
     Dosage: 200 MILLIGRAM, QD
     Route: 048
     Dates: start: 20190613, end: 20190818
  10. BRAFTOVI [Suspect]
     Active Substance: ENCORAFENIB
     Dosage: 200 MILLIGRAM
     Route: 048
     Dates: start: 20190927, end: 20190928
  11. BRAFTOVI [Suspect]
     Active Substance: ENCORAFENIB
     Dosage: UNK
     Route: 048
     Dates: start: 2020, end: 2020
  12. BRAFTOVI [Suspect]
     Active Substance: ENCORAFENIB
     Dosage: UNK
     Route: 048
     Dates: start: 2020
  13. BRAFTOVI [Suspect]
     Active Substance: ENCORAFENIB
     Dosage: UNK
     Route: 048
     Dates: start: 202010
  14. MEKTOVI [Suspect]
     Active Substance: BINIMETINIB
     Indication: Malignant melanoma
     Dosage: 60 MILLIGRAM, QD
     Route: 048
     Dates: start: 20200327, end: 20200409
  15. MEKTOVI [Suspect]
     Active Substance: BINIMETINIB
     Dosage: 90 MILLIGRAM
     Route: 048
     Dates: start: 20190410, end: 20190411
  16. MEKTOVI [Suspect]
     Active Substance: BINIMETINIB
     Dosage: 60 MILLIGRAM, QD
     Route: 048
     Dates: start: 20190417, end: 20190517
  17. MEKTOVI [Suspect]
     Active Substance: BINIMETINIB
     Dosage: 30 MILLIGRAM, QD
     Route: 048
     Dates: start: 20190613, end: 20190818
  18. MEKTOVI [Suspect]
     Active Substance: BINIMETINIB
     Dosage: 30 MILLIGRAM
     Route: 048
     Dates: start: 20190927, end: 20190928
  19. MEKTOVI [Suspect]
     Active Substance: BINIMETINIB
     Dosage: UNK
     Route: 048
     Dates: start: 2020, end: 2020
  20. MEKTOVI [Suspect]
     Active Substance: BINIMETINIB
     Dosage: UNK
     Route: 048
     Dates: start: 2020
  21. MEKTOVI [Suspect]
     Active Substance: BINIMETINIB
     Dosage: UNK
     Route: 048
     Dates: start: 202010

REACTIONS (1)
  - Death [Fatal]
